FAERS Safety Report 7968763-6 (Version None)
Quarter: 2011Q4

REPORT INFORMATION
  Report Type: 
  Country: None (occurrence: None)
  Receive Date: 20111122
  Receipt Date: 20110720
  Transmission Date: 20120403
  Serious: Yes (Other)
  Sender: FDA-Public Use
  Company Number: PHHY2011US65637

PATIENT
  Age: 29 Year
  Sex: Female

DRUGS (12)
  1. GILENYA [Suspect]
     Dosage: 1 DF, EVERYDAY, ORAL
     Route: 048
  2. SEASONALE (ETHINYLESTRADIOL, LEVONORGESTREL) [Concomitant]
  3. DIAZEPAM [Concomitant]
  4. SUMATRIPTAN SUCCINATE (IMITREX) [Concomitant]
  5. ZOFRAN [Concomitant]
  6. MECLIZINE [Concomitant]
  7. LOPRESSOR [Concomitant]
  8. SONATA [Concomitant]
  9. FLEXERIL [Concomitant]
  10. WELLBUTRIN SR (BUPROPION) TABLET [Concomitant]
  11. OXYCODONE HCL [Concomitant]
  12. BACLOFEN [Concomitant]

REACTIONS (8)
  - FALL [None]
  - DIZZINESS [None]
  - HEMIPLEGIA [None]
  - MULTIPLE SCLEROSIS RELAPSE [None]
  - ASTHENIA [None]
  - PARALYSIS [None]
  - GAIT DISTURBANCE [None]
  - FATIGUE [None]
